FAERS Safety Report 4512432-1 (Version None)
Quarter: 2004Q4

REPORT INFORMATION
  Report Type: 
  Country: None (occurrence: None)
  Receive Date: 20041124
  Receipt Date: 20041109
  Transmission Date: 20050328
  Serious: Yes (Hospitalization, Disabling, Other)
  Sender: FDA-Public Use
  Company Number: USA041183628

PATIENT
  Sex: Male

DRUGS (4)
  1. HUMULIN 70/30 [Suspect]
     Dosage: 40 U DAY
  2. PERCOCET [Concomitant]
  3. GABAPENTIN [Concomitant]
  4. VITAMINS AND MINERALS [Concomitant]

REACTIONS (4)
  - FEELING ABNORMAL [None]
  - GASTRIC DISORDER [None]
  - HYPOAESTHESIA [None]
  - LEG AMPUTATION [None]
